FAERS Safety Report 11423433 (Version 1)
Quarter: 2015Q3

REPORT INFORMATION
  Report Type: Report from Study
  Country: NL (occurrence: NL)
  Receive Date: 20150827
  Receipt Date: 20150827
  Transmission Date: 20151125
  Serious: Yes (Hospitalization, Other)
  Sender: FDA-Public Use
  Company Number: PHHO2015NL013373

PATIENT
  Age: 62 Year
  Sex: Male
  Weight: 85 kg

DRUGS (8)
  1. PREDNISONE. [Suspect]
     Active Substance: PREDNISONE
     Indication: LETHARGY
     Dosage: 20 MG, QD
     Route: 048
  2. HDM201 [Suspect]
     Active Substance: INVESTIGATIONAL PRODUCT
     Indication: SMALL INTESTINE CARCINOMA
     Dosage: 15 MG, QD
     Route: 048
     Dates: start: 20150615
  3. METFORMIN [Concomitant]
     Active Substance: METFORMIN HYDROCHLORIDE
     Indication: DIABETES MELLITUS
     Dosage: 500 MG, BID
     Route: 048
  4. MAGNESIUM HYDROXIDE. [Concomitant]
     Active Substance: MAGNESIUM HYDROXIDE
     Indication: CONSTIPATION
     Dosage: 724 MG, TID
     Route: 048
  5. MACROGOL [Concomitant]
     Active Substance: POLYETHYLENE GLYCOLS
     Indication: CONSTIPATION
     Dosage: 1 DF, QD
     Route: 048
  6. OXYCODON [Concomitant]
     Active Substance: OXYCODONE
     Indication: ABDOMINAL PAIN
     Dosage: 10 MG, BID
     Route: 048
  7. OXYCODON [Concomitant]
     Active Substance: OXYCODONE
     Dosage: 5 MG, (4 TO 5X)
     Route: 048
  8. OMEPRAZOL//OMEPRAZOLE [Concomitant]
     Indication: GASTROOESOPHAGEAL REFLUX DISEASE
     Dosage: 40 MG, BID
     Route: 065

REACTIONS (5)
  - Melaena [Recovered/Resolved]
  - Abdominal pain [Recovering/Resolving]
  - Blood urea increased [None]
  - Oesophageal candidiasis [None]
  - Haemoglobin decreased [None]

NARRATIVE: CASE EVENT DATE: 20150816
